FAERS Safety Report 23278476 (Version 1)
Quarter: 2023Q4

REPORT INFORMATION
  Report Type: Other
  Country: CN (occurrence: CN)
  Receive Date: 20231208
  Receipt Date: 20231208
  Transmission Date: 20240110
  Serious: Yes (Hospitalization)
  Sender: FDA-Public Use
  Company Number: CN-GE HEALTHCARE-2023CSU011139

PATIENT
  Age: 87 Year
  Sex: Female

DRUGS (7)
  1. OMNIPAQUE [Suspect]
     Active Substance: IOHEXOL
     Indication: Computerised tomogram abdomen
     Dosage: 800 ML, SINGLE
     Route: 048
     Dates: start: 20231112, end: 20231112
  2. OMNIPAQUE [Suspect]
     Active Substance: IOHEXOL
     Indication: Decreased appetite
  3. OMNIPAQUE [Suspect]
     Active Substance: IOHEXOL
     Indication: Hypophagia
  4. OMNIPAQUE [Suspect]
     Active Substance: IOHEXOL
     Indication: Nasal obstruction
  5. OMNIPAQUE [Suspect]
     Active Substance: IOHEXOL
     Indication: Cough
  6. OMNIPAQUE [Suspect]
     Active Substance: IOHEXOL
     Indication: Sputum retention
  7. OMNIPAQUE [Suspect]
     Active Substance: IOHEXOL
     Indication: Asthenia

REACTIONS (1)
  - Renal injury [Recovering/Resolving]

NARRATIVE: CASE EVENT DATE: 20231113
